FAERS Safety Report 9083340 (Version 1)
Quarter: 2013Q1

REPORT INFORMATION
  Report Type: Report from Study
  Country: US (occurrence: US)
  Receive Date: 20130131
  Receipt Date: 20130131
  Transmission Date: 20140127
  Serious: No
  Sender: FDA-Public Use
  Company Number: US-ABBOTT-12P-163-0989692-00

PATIENT
  Sex: Female
  Weight: 84.44 kg

DRUGS (10)
  1. HUMIRA [Suspect]
     Indication: PSORIATIC ARTHROPATHY
     Route: 058
     Dates: start: 20120912, end: 20120912
  2. HUMIRA [Suspect]
     Dates: start: 20120919
  3. METHOTREXATE [Concomitant]
     Indication: PSORIATIC ARTHROPATHY
     Dosage: TAPERING DOSES
  4. FOLIC ACID [Concomitant]
     Indication: PRODUCT USED FOR UNKNOWN INDICATION
  5. ORTHO EVRA [Concomitant]
     Indication: CONTRACEPTION
  6. TURMERIC [Concomitant]
     Indication: SUPPLEMENTATION THERAPY
  7. TURMERIC [Concomitant]
     Indication: PSORIATIC ARTHROPATHY
  8. PROBIOTIC ACIDOPHILUS [Concomitant]
     Indication: SUPPLEMENTATION THERAPY
  9. PROBIOTIC ACIDOPHILUS [Concomitant]
     Indication: PSORIATIC ARTHROPATHY
  10. DAILY MULTIVITAMIN WITH CALCIUM [Concomitant]
     Indication: SUPPLEMENTATION THERAPY

REACTIONS (2)
  - Dark circles under eyes [Not Recovered/Not Resolved]
  - Poor quality sleep [Not Recovered/Not Resolved]
